FAERS Safety Report 7425149-0 (Version None)
Quarter: 2011Q2

REPORT INFORMATION
  Report Type: 
  Country: None (occurrence: None)
  Receive Date: 20110412
  Receipt Date: 20110328
  Transmission Date: 20111010
  Serious: Yes (Other)
  Sender: FDA-Public Use
  Company Number: 2011P1005464

PATIENT
  Age: 77 Year
  Sex: Female
  Weight: 70.3075 kg

DRUGS (14)
  1. CORGARD [Concomitant]
  2. TORSEMIDE [Concomitant]
  3. PREDNISONE [Concomitant]
  4. WARFARIN SODIUM [Suspect]
     Indication: ATRIAL FIBRILLATION
     Dosage: QD; QD;
     Dates: start: 20060101, end: 20100801
  5. WARFARIN SODIUM [Suspect]
     Indication: ATRIAL FIBRILLATION
     Dosage: QD; QD;
     Dates: start: 20100801
  6. TRIAMCINOLONE [Suspect]
     Indication: ARTHRALGIA
     Dosage: ;X1;PARN
     Dates: start: 20100601, end: 20100601
  7. SPIRONOLACTONE [Concomitant]
  8. CORZAAR (LOSARTAN) [Concomitant]
  9. WARFARIN SODIUM [Suspect]
     Indication: ATRIAL FIBRILLATION
     Dosage: QD;
     Dates: start: 20060101, end: 20100801
  10. WARFARIN SODIUM [Suspect]
     Indication: ATRIAL FIBRILLATION
     Dosage: QD;
     Dates: start: 20100801
  11. SOTALOL HCL [Concomitant]
  12. PLAQUENIL [Concomitant]
  13. ALLOPURINOL [Concomitant]
  14. OXYBUTYNIN [Concomitant]

REACTIONS (4)
  - INTERNATIONAL NORMALISED RATIO INCREASED [None]
  - DRUG INTERACTION [None]
  - CONTUSION [None]
  - CEREBROVASCULAR ACCIDENT [None]
